FAERS Safety Report 7579098-8 (Version None)
Quarter: 2011Q2

REPORT INFORMATION
  Report Type: 
  Country: None (occurrence: None)
  Receive Date: 20110628
  Receipt Date: 20110622
  Transmission Date: 20111010
  Serious: Yes (Hospitalization)
  Sender: FDA-Public Use
  Company Number: DK-PFIZER INC-2011140649

PATIENT
  Age: 41 Year
  Sex: Female

DRUGS (11)
  1. CYTARABINE [Suspect]
     Indication: MYELODYSPLASTIC SYNDROME
  2. TRANEXAMIC ACID [Concomitant]
     Dosage: UNK
     Dates: start: 20101109, end: 20101220
  3. GEMTUZUMAB OZOGAMICIN [Suspect]
     Indication: MYELODYSPLASTIC SYNDROME
  4. GEMTUZUMAB OZOGAMICIN [Suspect]
     Indication: ACUTE MYELOID LEUKAEMIA
     Dosage: UNK
     Dates: start: 20101118, end: 20101127
  5. PROVERA [Concomitant]
  6. POSACONAZOLE [Concomitant]
     Dosage: 200 MG, 3X/DAY
     Dates: start: 20101123, end: 20101222
  7. AMOXICILLIN [Concomitant]
     Dosage: 500 MG, 3X/DAY
     Dates: start: 20101118, end: 20101217
  8. CYTARABINE [Suspect]
     Indication: ACUTE MYELOID LEUKAEMIA
     Dosage: UNK
     Dates: start: 20101118, end: 20101127
  9. DAUNORUBICIN HCL [Suspect]
     Indication: ACUTE MYELOID LEUKAEMIA
     Dosage: UNK
     Dates: start: 20101118, end: 20101127
  10. DAUNORUBICIN HCL [Suspect]
     Indication: MYELODYSPLASTIC SYNDROME
  11. PANTOPRAZOLE [Concomitant]
     Dosage: 40 MG, 1X/DAY
     Dates: start: 20101126

REACTIONS (1)
  - DEEP VEIN THROMBOSIS [None]
